FAERS Safety Report 25019407 (Version 1)
Quarter: 2025Q1

REPORT INFORMATION
  Report Type: Spontaneous
  Country: US (occurrence: US)
  Receive Date: 20250227
  Receipt Date: 20250227
  Transmission Date: 20250409
  Serious: No
  Sender: TEVA
  Company Number: US-TEVA-VS-3296486

PATIENT
  Age: 78 Year
  Sex: Female

DRUGS (6)
  1. ATENOLOL [Suspect]
     Active Substance: ATENOLOL
     Indication: Product used for unknown indication
     Dosage: 50MG OF ATENOLOL AT NIGHT AND 25MG DURING THE DAY,
     Route: 048
     Dates: start: 2023
  2. ATENOLOL [Suspect]
     Active Substance: ATENOLOL
     Indication: Product used for unknown indication
     Dosage: 50MG AT NIGHT AND 50MG DURING THE DAY
     Route: 048
     Dates: start: 2023
  3. ATENOLOL [Suspect]
     Active Substance: ATENOLOL
     Indication: Product used for unknown indication
     Dosage: NOW AT 75MG AT NIGHT AND 75MG DURING THE DAY.
     Route: 048
     Dates: start: 2023
  4. AMLODIPINE BESYLATE [Suspect]
     Active Substance: AMLODIPINE BESYLATE
     Indication: Product used for unknown indication
     Route: 048
  5. AMLODIPINE BESYLATE [Suspect]
     Active Substance: AMLODIPINE BESYLATE
     Indication: Product used for unknown indication
     Route: 048
  6. ATORVASTATIN [Suspect]
     Active Substance: ATORVASTATIN
     Indication: Product used for unknown indication
     Dosage: 10MG ONCE A DAY AT NIGHT
     Route: 065

REACTIONS (5)
  - Labile blood pressure [Unknown]
  - Incorrect dose administered [Unknown]
  - Discontinued product administered [Unknown]
  - Weight decreased [Unknown]
  - Heart rate decreased [Unknown]
